FAERS Safety Report 9224336 (Version 3)
Quarter: 2013Q2

REPORT INFORMATION
  Report Type: Report from Study
  Country: US (occurrence: US)
  Receive Date: 20130411
  Receipt Date: 20130513
  Transmission Date: 20140414
  Serious: Yes (Hospitalization, Other)
  Sender: FDA-Public Use
  Company Number: PHEH2013US007830

PATIENT
  Sex: Male

DRUGS (1)
  1. GLEEVEC [Suspect]
     Indication: CHRONIC MYELOID LEUKAEMIA
     Dosage: 600 MG, QD (TAKE ONE AND ONE-HALF TAB)
     Route: 048
     Dates: start: 20111005

REACTIONS (6)
  - Procedural complication [Unknown]
  - Exostosis [Unknown]
  - Gangrene [Unknown]
  - Foot deformity [Unknown]
  - Staphylococcal infection [Recovered/Resolved]
  - Thrombosis [Unknown]
